FAERS Safety Report 16305407 (Version 3)
Quarter: 2022Q1

REPORT INFORMATION
  Report Type: Spontaneous
  Country: US (occurrence: None)
  Receive Date: 20190513
  Receipt Date: 20220203
  Transmission Date: 20220423
  Serious: Yes (Hospitalization, Other)
  Sender: FDA-Public Use
  Company Number: 2019SE64121

PATIENT
  Age: 27286 Day
  Sex: Male

DRUGS (41)
  1. NEXIUM [Suspect]
     Active Substance: ESOMEPRAZOLE MAGNESIUM
     Indication: Dyspepsia
     Route: 048
     Dates: start: 2001
  2. NEXIUM [Suspect]
     Active Substance: ESOMEPRAZOLE MAGNESIUM
     Indication: Gastrooesophageal reflux disease
     Route: 048
     Dates: start: 2001
  3. PREVACID [Suspect]
     Active Substance: LANSOPRAZOLE
     Indication: Dyspepsia
     Route: 065
     Dates: start: 2001
  4. PREVACID [Suspect]
     Active Substance: LANSOPRAZOLE
     Indication: Gastrooesophageal reflux disease
     Route: 065
     Dates: start: 2001
  5. PRAVACHOL [Concomitant]
     Active Substance: PRAVASTATIN SODIUM
     Indication: Blood cholesterol increased
     Dates: start: 19990308, end: 20000804
  6. VEETIDS [Concomitant]
     Active Substance: PENICILLIN V POTASSIUM
     Indication: Bacterial infection
     Dates: start: 19990312
  7. CEPHALEXIN [Concomitant]
     Active Substance: CEPHALEXIN
     Indication: Antibiotic therapy
     Dates: start: 19990315
  8. CIPRO [Concomitant]
     Active Substance: CIPROFLOXACIN HYDROCHLORIDE
     Indication: Antibiotic therapy
     Dates: start: 19990303
  9. TYLENOL WITH CODEINE [Concomitant]
     Active Substance: ACETAMINOPHEN\CODEINE PHOSPHATE
     Indication: Pain
     Dates: start: 19990316
  10. ENDOCET [Concomitant]
     Active Substance: ACETAMINOPHEN\OXYCODONE HYDROCHLORIDE
     Indication: Pain
     Dates: start: 19990318
  11. BIAXIN [Concomitant]
     Active Substance: CLARITHROMYCIN
     Indication: Antibiotic therapy
     Dates: start: 19990508
  12. AUGMENTIN [Concomitant]
     Active Substance: AMOXICILLIN\CLAVULANATE POTASSIUM
     Indication: Antibiotic therapy
     Dates: start: 19991207
  13. LEVAQUIN [Concomitant]
     Active Substance: LEVOFLOXACIN
     Indication: Antibiotic therapy
     Dates: start: 20000105, end: 2009
  14. NORVASC [Concomitant]
     Active Substance: AMLODIPINE BESYLATE
     Indication: Hypertension
     Dates: start: 19991227
  15. NORVASC [Concomitant]
     Active Substance: AMLODIPINE BESYLATE
     Indication: Angina pectoris
     Dates: start: 19991227
  16. HUMULIN NOS [Concomitant]
     Active Substance: INSULIN HUMAN
     Indication: Blood insulin
     Dates: start: 20000105, end: 2009
  17. HUMULIN NOS [Concomitant]
     Active Substance: INSULIN HUMAN
     Indication: Diabetes mellitus
     Dates: start: 20000105, end: 2009
  18. LOTREL [Concomitant]
     Active Substance: AMLODIPINE BESYLATE\BENAZEPRIL HYDROCHLORIDE
     Indication: Hypertension
     Dates: start: 19991227
  19. RELION [Concomitant]
     Indication: Blood glucose abnormal
     Dates: start: 20001019, end: 2009
  20. RANITIDINE [Concomitant]
     Active Substance: RANITIDINE
     Dates: start: 20010503, end: 20060130
  21. PEPTO-BISMOL [Concomitant]
     Active Substance: BISMUTH SUBSALICYLATE
     Dates: start: 20010503, end: 20060130
  22. ALKA-SELTZER [Concomitant]
     Active Substance: ANHYDROUS CITRIC ACID\ASPIRIN\SODIUM BICARBONATE
     Dates: start: 20010503, end: 20060130
  23. METOPROLOL [Concomitant]
     Active Substance: METOPROLOL
     Dates: start: 20010503, end: 20060130
  24. LEVEMIR [Concomitant]
     Active Substance: INSULIN DETEMIR
     Dates: start: 20010503, end: 20060130
  25. OXYCODONE [Concomitant]
     Active Substance: OXYCODONE
     Dates: start: 20010503, end: 20060130
  26. OXYBUTYNIN [Concomitant]
     Active Substance: OXYBUTYNIN
     Dates: start: 20010503, end: 20060130
  27. GABAPENTIN [Concomitant]
     Active Substance: GABAPENTIN
     Dates: start: 20010503, end: 20060130
  28. PIOGLITAZONE [Concomitant]
     Active Substance: PIOGLITAZONE
     Dates: start: 20010503, end: 20060130
  29. RAMIPRIL [Concomitant]
     Active Substance: RAMIPRIL
     Dates: start: 20010503, end: 20060130
  30. JANUVIA [Concomitant]
     Active Substance: SITAGLIPTIN PHOSPHATE
     Dates: start: 20010503, end: 20060130
  31. FUROSEMIDE [Concomitant]
     Active Substance: FUROSEMIDE
     Dates: start: 20010503, end: 20060130
  32. EFFIENT [Concomitant]
     Active Substance: PRASUGREL HYDROCHLORIDE
     Dates: start: 20010503, end: 20060130
  33. HYDROCODONE [Concomitant]
     Active Substance: HYDROCODONE
     Dates: start: 20010503, end: 20060130
  34. MAGNESIUM OXIDE [Concomitant]
     Active Substance: MAGNESIUM OXIDE
     Dates: start: 20010503, end: 20060130
  35. CIPROFLOXACIN [Concomitant]
     Active Substance: CIPROFLOXACIN
     Dates: start: 20010503, end: 20060130
  36. CRESTOR [Concomitant]
     Active Substance: ROSUVASTATIN CALCIUM
     Dates: start: 20010503, end: 20060130
  37. ALBUTEROL [Concomitant]
     Active Substance: ALBUTEROL
     Dates: start: 20010503, end: 20060130
  38. DICYCLOMINE [Concomitant]
     Active Substance: DICYCLOMINE HYDROCHLORIDE
     Dates: start: 20010503, end: 20060130
  39. CARAFATE [Concomitant]
     Active Substance: SUCRALFATE
     Dates: start: 20010503, end: 20060130
  40. LOPRESSOR [Concomitant]
     Active Substance: METOPROLOL TARTRATE
     Dates: start: 20010503, end: 20060130
  41. ULORIC [Concomitant]
     Active Substance: FEBUXOSTAT
     Dates: start: 20010503, end: 20060130

REACTIONS (4)
  - Chronic kidney disease [Not Recovered/Not Resolved]
  - Acute kidney injury [Unknown]
  - End stage renal disease [Unknown]
  - Renal impairment [Unknown]

NARRATIVE: CASE EVENT DATE: 20190519
